FAERS Safety Report 9867988 (Version 2)
Quarter: 2014Q1

REPORT INFORMATION
  Report Type: Report from Study
  Country: CA (occurrence: CA)
  Receive Date: 20140204
  Receipt Date: 20140204
  Transmission Date: 20141002
  Serious: Yes (Hospitalization)
  Sender: FDA-Public Use
  Company Number: CA-BRISTOL-MYERS SQUIBB COMPANY-20035259

PATIENT
  Age: 59 Year
  Sex: Female

DRUGS (3)
  1. ORENCIA [Suspect]
     Indication: RHEUMATOID ARTHRITIS
     Dosage: 1DF: 500, UNIT: NOS?STARTED AGAIN: 12OCT2010
     Dates: start: 20100803
  2. LEFLUNOMIDE [Concomitant]
  3. ARTHROTEC [Concomitant]

REACTIONS (5)
  - Hypoaesthesia [Unknown]
  - Urinary incontinence [Unknown]
  - Spinal cord infection [Unknown]
  - Influenza [Unknown]
  - Gastroenteritis viral [Unknown]
